FAERS Safety Report 9856748 (Version 1)
Quarter: 2014Q1

REPORT INFORMATION
  Report Type: Spontaneous
  Country: CH (occurrence: CH)
  Receive Date: 20140130
  Receipt Date: 20140130
  Transmission Date: 20141002
  Serious: Yes (Other)
  Sender: FDA-Public Use
  Company Number: CH-GLAXOSMITHKLINE-B0964723A

PATIENT
  Age: 60 Year
  Sex: Male

DRUGS (3)
  1. VOTRIENT [Suspect]
     Indication: RENAL CANCER METASTATIC
     Dates: start: 20130802
  2. AFINITOR [Concomitant]
  3. AXITINIB [Concomitant]

REACTIONS (9)
  - Haemoptysis [Unknown]
  - Fatigue [Unknown]
  - Hepatic enzyme increased [Unknown]
  - Drug ineffective [Unknown]
  - Hyperglycaemia [Unknown]
  - Mucosal inflammation [Unknown]
  - Cough [Unknown]
  - Pyrexia [Unknown]
  - Pneumonitis [Unknown]
